FAERS Safety Report 13370781 (Version 4)
Quarter: 2020Q1

REPORT INFORMATION
  Report Type: Spontaneous
  Country: US (occurrence: US)
  Receive Date: 20170324
  Receipt Date: 20200102
  Transmission Date: 20200409
  Serious: Yes (Death, Hospitalization)
  Sender: FDA-Public Use
  Company Number: US-JNJFOC-20170320600

PATIENT
  Age: 57 Year
  Sex: Male

DRUGS (2)
  1. XARELTO [Suspect]
     Active Substance: RIVAROXABAN
     Route: 048
     Dates: start: 20150213, end: 20150313
  2. XARELTO [Suspect]
     Active Substance: RIVAROXABAN
     Indication: PULMONARY EMBOLISM
     Route: 048
     Dates: start: 20150208

REACTIONS (5)
  - Haematuria [Unknown]
  - Haematemesis [Unknown]
  - Epistaxis [Unknown]
  - Haemorrhage [Unknown]
  - Upper gastrointestinal haemorrhage [Unknown]

NARRATIVE: CASE EVENT DATE: 201502
